FAERS Safety Report 8476778-7 (Version None)
Quarter: 2012Q2

REPORT INFORMATION
  Report Type: 
  Country: None (occurrence: None)
  Receive Date: 20120628
  Receipt Date: 20120620
  Transmission Date: 20120825
  Serious: Yes (Other)
  Sender: FDA-Public Use
  Company Number: JP-MERCK-1206USA00386

PATIENT
  Age: 80 Year
  Sex: Male
  Weight: 50 kg

DRUGS (14)
  1. BAKTAR [Concomitant]
     Route: 048
     Dates: start: 20120427, end: 20120518
  2. ITRACONAZOLE [Concomitant]
     Route: 065
     Dates: start: 20120427, end: 20120518
  3. ACETAMINOPHEN [Concomitant]
     Route: 048
     Dates: start: 20120417
  4. THERARUBICIN [Concomitant]
     Route: 065
     Dates: start: 20120502
  5. ONCOVIN [Concomitant]
     Route: 065
     Dates: start: 20120502
  6. PREDNISOLONE SODIUM SUCCINATE INJ [Concomitant]
     Route: 048
     Dates: start: 20120502
  7. PEPCID RPD [Suspect]
     Route: 048
     Dates: start: 20120502, end: 20120518
  8. OXYCODONE HYDROCHLORIDE [Suspect]
     Indication: CANCER PAIN
     Route: 048
     Dates: start: 20120426
  9. CYCLOPHOSPHAMIDE [Concomitant]
     Route: 065
     Dates: start: 20120502
  10. HORMONES (UNSPECIFIED) [Concomitant]
     Route: 065
  11. ANALGESIC (UNSPECIFIED) [Concomitant]
     Route: 048
  12. CORTICOSTEROIDS (UNSPECIFIED) [Concomitant]
     Route: 065
  13. FENTORA [Suspect]
     Indication: CANCER PAIN
     Route: 061
     Dates: start: 20120430
  14. RITUXAN [Concomitant]
     Route: 065
     Dates: start: 20120501

REACTIONS (3)
  - DYSKINESIA [None]
  - RASH [None]
  - MUSCLE SPASMS [None]
